FAERS Safety Report 6143292-3 (Version None)
Quarter: 2009Q2

REPORT INFORMATION
  Report Type: 
  Country: None (occurrence: None)
  Receive Date: 20090403
  Receipt Date: 20090326
  Transmission Date: 20091009
  Serious: Yes (Hospitalization)
  Sender: FDA-Public Use
  Company Number: A0772185A

PATIENT
  Age: 32 Year
  Sex: Female
  Weight: 55.2 kg

DRUGS (4)
  1. ELTROMBOPAG [Suspect]
     Indication: IDIOPATHIC THROMBOCYTOPENIC PURPURA
     Dosage: 25MG PER DAY
     Route: 048
     Dates: start: 20071212, end: 20090220
  2. CYMBALTA [Concomitant]
     Indication: DEPRESSION
     Dosage: 60MG PER DAY
     Route: 048
     Dates: start: 20080715, end: 20090220
  3. CONDOM + SPERMICIDE [Concomitant]
     Indication: CONTRACEPTION
  4. IMMUNE GLOBULIN INTRAVENOUS (HUMAN) [Concomitant]
     Indication: IDIOPATHIC THROMBOCYTOPENIC PURPURA
     Dosage: 30G SINGLE DOSE
     Route: 042
     Dates: start: 20090320, end: 20090320

REACTIONS (6)
  - ABDOMINAL PAIN [None]
  - BLOOD HUMAN CHORIONIC GONADOTROPIN ABNORMAL [None]
  - DRUG EXPOSURE DURING PREGNANCY [None]
  - ECTOPIC PREGNANCY [None]
  - HORMONE LEVEL ABNORMAL [None]
  - VAGINAL HAEMORRHAGE [None]
